FAERS Safety Report 9883629 (Version 3)
Quarter: 2014Q1

REPORT INFORMATION
  Report Type: Spontaneous
  Country: BE (occurrence: BE)
  Receive Date: 20140210
  Receipt Date: 20140328
  Transmission Date: 20141002
  Serious: Yes (Death, Hospitalization)
  Sender: FDA-Public Use
  Company Number: BE-ROCHE-1278463

PATIENT
  Age: 67 Year
  Sex: Female
  Weight: 56 kg

DRUGS (9)
  1. AVASTIN [Suspect]
     Indication: CERVIX CARCINOMA
     Route: 042
     Dates: start: 201301, end: 20130821
  2. AVASTIN [Suspect]
     Route: 042
     Dates: start: 20130429
  3. ASAFLOW [Concomitant]
     Route: 048
     Dates: start: 20130907, end: 20140118
  4. EMCONCOR [Concomitant]
     Indication: HYPERTENSION
     Route: 048
     Dates: start: 20130912, end: 20140118
  5. ZOCOR [Concomitant]
     Route: 048
     Dates: start: 20130911, end: 20140118
  6. SIPRALEXA [Concomitant]
     Indication: MOOD ALTERED
     Route: 048
     Dates: end: 20140118
  7. SCHERIPROCT (BELGIUM) [Concomitant]
     Indication: HAEMORRHOIDS
     Dosage: 1 APPLICATION.?CINCHOCAINE HYDROCHLORIDE 5MG / PREDNISOLON, CAPROAAT 1,9MG/ G
     Route: 061
     Dates: start: 20131230
  8. NUROFEN [Concomitant]
     Indication: ABDOMINAL PAIN
     Route: 048
  9. ZYRTEC [Concomitant]
     Route: 048

REACTIONS (3)
  - General physical health deterioration [Fatal]
  - Posterior reversible encephalopathy syndrome [Not Recovered/Not Resolved]
  - Off label use [Unknown]
